FAERS Safety Report 4313265-1 (Version None)
Quarter: 2004Q1

REPORT INFORMATION
  Report Type: 
  Country: None (occurrence: None)
  Receive Date: 20040305
  Receipt Date: 20040212
  Transmission Date: 20041129
  Serious: Yes (Hospitalization)
  Sender: FDA-Public Use
  Company Number: A-CH2004-05171

PATIENT
  Age: 80 Year
  Sex: Female
  Weight: 60 kg

DRUGS (12)
  1. TRACLEER [Suspect]
     Indication: PULMONARY HYPERTENSION
     Dosage: 62.5 MG, BID, ORAL; 125 MG, BID, ORAL
     Route: 048
     Dates: start: 20030826, end: 20030909
  2. TRACLEER [Suspect]
     Indication: PULMONARY HYPERTENSION
     Dosage: 62.5 MG, BID, ORAL; 125 MG, BID, ORAL
     Route: 048
     Dates: start: 20030910, end: 20031003
  3. TRACLEER [Suspect]
     Indication: PULMONARY HYPERTENSION
     Dosage: 62.5 MG, BID, ORAL; 125 MG, BID, ORAL
     Route: 048
     Dates: start: 20031007
  4. PREDNISOLONE [Concomitant]
  5. ZOCOR [Concomitant]
  6. ZOLOFT [Concomitant]
  7. ASTRIX (ACETYLSALICYLIC ACID) [Concomitant]
  8. INDAPAMIDE [Concomitant]
  9. LOSEC (OMEPRAZOLE) [Concomitant]
  10. ATACAND [Concomitant]
  11. EVISTA [Concomitant]
  12. LERCANIDIPINE [Concomitant]

REACTIONS (4)
  - DIVERTICULUM [None]
  - GASTRITIS HAEMORRHAGIC [None]
  - GASTROINTESTINAL HAEMORRHAGE [None]
  - IRON DEFICIENCY ANAEMIA [None]
